FAERS Safety Report 24462715 (Version 1)
Quarter: 2024Q4

REPORT INFORMATION
  Report Type: Spontaneous
  Country: BE (occurrence: BE)
  Receive Date: 20241018
  Receipt Date: 20241018
  Transmission Date: 20250115
  Serious: Yes (Disabling)
  Sender: BAXTER
  Company Number: None

PATIENT
  Age: 30 Year
  Sex: Female
  Weight: 117 kg

DRUGS (9)
  1. CYCLOPHOSPHAMIDE [Suspect]
     Active Substance: CYCLOPHOSPHAMIDE
     Dosage: 1320 MG IN 250 ML NACL 0.9% IN 30 MIN 4TH TREATMENT OF CHEMOTHERAPY
     Route: 065
     Dates: start: 20240829, end: 20240829
  2. EPIRUBICIN [Suspect]
     Active Substance: EPIRUBICIN
     Dosage: IV 200MG IN 250ML NACL 0.9% IN 30 MIN 4TH TREATMENT OF CHEMOTHERAPY
     Route: 065
     Dates: start: 20240829, end: 20240829
  3. DEXAMETHASONE [Concomitant]
     Active Substance: DEXAMETHASONE
     Dosage: IV INFUSION 10 MG
     Route: 065
     Dates: start: 20240829, end: 20240829
  4. ELIQUIS [Concomitant]
     Active Substance: APIXABAN
     Indication: Thrombophlebitis
     Dosage: 2 DOSAGE FORM, ONCE A DAY, MORNING/EVENING
     Route: 065
     Dates: start: 20240814
  5. ZIEXTENZO [Concomitant]
     Active Substance: PEGFILGRASTIM-BMEZ
     Indication: Neutropenia
     Dosage: 6 MG, TOTAL, 1 INJECTION ON 30/08; 1 DAY AFTER THE 4TH COURSE OF CHEMOTHERAPY (2024/08/29) (SOLUTION
     Route: 059
     Dates: start: 20240830
  6. PALONOSETRON [Concomitant]
     Active Substance: PALONOSETRON
     Dosage: UNK, 1 H BEFORE CHEMOTHERAPY
     Route: 065
     Dates: start: 20240829, end: 20240829
  7. NETUPITANT [Concomitant]
     Active Substance: NETUPITANT
     Dosage: UNK, 1 H BEFORE CHEMOTHERAPY
     Route: 065
     Dates: start: 20240829, end: 20240829
  8. DAFALGAN [Concomitant]
     Active Substance: ACETAMINOPHEN
     Dosage: UNK, IF NEEDED
     Route: 065
  9. Befact forte [Concomitant]
     Dosage: 1 DOSAGE FORM, ONE A DAY
     Route: 065

REACTIONS (6)
  - Haemorrhoids [Unknown]
  - Gastrointestinal motility disorder [Unknown]
  - Headache [Unknown]
  - Asthenia [Recovered/Resolved]
  - Abdominal pain upper [Unknown]
  - Myalgia [Unknown]
